FAERS Safety Report 8828086 (Version 1)
Quarter: 2012Q4

REPORT INFORMATION
  Report Type: 
  Country: CN (occurrence: CN)
  Receive Date: 20121005
  Receipt Date: 20121005
  Transmission Date: 20130627
  Serious: Yes (Hospitalization)
  Sender: FDA-Public Use
  Company Number: CN-JNJFOC-20120912628

PATIENT
  Age: 51 Year
  Sex: Female

DRUGS (2)
  1. TYLENOL COLD [Suspect]
     Indication: NASOPHARYNGITIS
     Route: 048
     Dates: start: 20091115, end: 20091115
  2. TYLENOL COLD [Suspect]
     Indication: UPPER RESPIRATORY TRACT INFECTION
     Route: 048
     Dates: start: 20091115, end: 20091115

REACTIONS (4)
  - Rash [Recovered/Resolved]
  - Erythema multiforme [Recovered/Resolved]
  - Pruritus [None]
  - Eyelid oedema [None]
